FAERS Safety Report 9519450 (Version 2)
Quarter: 2013Q4

REPORT INFORMATION
  Report Type: Spontaneous
  Country: JP (occurrence: JP)
  Receive Date: 20130912
  Receipt Date: 20131007
  Transmission Date: 20140711
  Serious: Yes (Other)
  Sender: FDA-Public Use
  Company Number: JP-GLAXOSMITHKLINE-B0921273A

PATIENT
  Age: 62 Year
  Sex: Female

DRUGS (4)
  1. VALTREX [Suspect]
     Indication: HERPES ZOSTER
     Dosage: 1000MG THREE TIMES PER DAY
     Route: 048
     Dates: start: 20130831, end: 20130902
  2. BLOPRESS [Concomitant]
     Route: 048
  3. DIOVAN [Concomitant]
     Route: 048
  4. BETAHISTINE MESYLATE [Concomitant]
     Route: 048

REACTIONS (3)
  - Renal failure acute [Recovered/Resolved]
  - Nausea [Unknown]
  - Decreased appetite [Unknown]
